FAERS Safety Report 6638756-X (Version None)
Quarter: 2010Q1

REPORT INFORMATION
  Report Type: 
  Country: None (occurrence: None)
  Receive Date: 20100317
  Receipt Date: 20100305
  Transmission Date: 20100710
  Serious: Yes (Other)
  Sender: FDA-Public Use
  Company Number: US-PFIZER INC-2010029043

PATIENT
  Sex: Male
  Weight: 90.703 kg

DRUGS (13)
  1. LYRICA [Suspect]
     Indication: PAIN
     Dosage: 75 MG, 2X/DAY
     Route: 048
     Dates: start: 20060101
  2. LYRICA [Suspect]
     Indication: NEUROPATHY PERIPHERAL
     Dosage: 150 MG, 2X/DAY
     Route: 048
  3. BENADRYL [Suspect]
     Dosage: UNK
  4. DIGOXIN [Concomitant]
     Indication: ATRIAL FIBRILLATION
     Dosage: 25 UG, 2X/DAY
  5. BETAPACE [Concomitant]
     Indication: ATRIAL FIBRILLATION
     Dosage: 160 MG, 2X/DAY
  6. WARFARIN SODIUM [Concomitant]
     Indication: ATRIAL FIBRILLATION
     Dosage: 7 MG, DAILY
  7. HYTRIN [Concomitant]
     Indication: NEUROGENIC BLADDER
     Dosage: 5 MG, 3X/DAY
  8. SKELAXIN [Concomitant]
     Indication: MUSCLE RELAXANT THERAPY
     Dosage: 800 MG, 3X/DAY
  9. LIDODERM [Concomitant]
     Dosage: UNK, 2XDAY
     Route: 058
  10. MORPHINE SULFATE [Concomitant]
     Dosage: 60 MG, 2X/DAY
  11. ROXICODONE [Concomitant]
     Dosage: 15 MG, 6XDAY
  12. ZOLOFT [Concomitant]
     Indication: DEPRESSION
     Dosage: 50 MG, 1X/DAY
     Route: 048
  13. SONATA [Concomitant]
     Indication: INSOMNIA
     Dosage: 10 MG, 1X/DAY

REACTIONS (2)
  - ASTIGMATISM [None]
  - VISION BLURRED [None]
